FAERS Safety Report 24275579 (Version 4)
Quarter: 2025Q3

REPORT INFORMATION
  Report Type: Report from Study
  Country: JP (occurrence: JP)
  Receive Date: 20240903
  Receipt Date: 20250717
  Transmission Date: 20251021
  Serious: Yes (Other)
  Sender: UCB
  Company Number: JP-UCBJ-CD202407851UCBPHAPROD

PATIENT
  Age: 17 Year
  Sex: Male
  Weight: 41.2 kg

DRUGS (15)
  1. FENFLURAMINE HYDROCHLORIDE [Suspect]
     Active Substance: FENFLURAMINE HYDROCHLORIDE
     Indication: Lennox-Gastaut syndrome
     Dosage: 0.03 MILLIGRAM/KILOGRAM, 2X/DAY (BID)
     Route: 048
     Dates: start: 20240612, end: 20240723
  2. FENFLURAMINE HYDROCHLORIDE [Suspect]
     Active Substance: FENFLURAMINE HYDROCHLORIDE
     Dosage: 0.03 MILLIGRAM/KILOGRAM, 2X/DAY (BID)
     Route: 048
     Dates: start: 20250204, end: 20250325
  3. PHENOBARBITAL [Concomitant]
     Active Substance: PHENOBARBITAL
     Indication: Lennox-Gastaut syndrome
     Dosage: 80 MILLIGRAM, ONCE DAILY (QD)
     Route: 048
  4. ZONISAMIDE [Concomitant]
     Active Substance: ZONISAMIDE
     Indication: Lennox-Gastaut syndrome
     Dosage: 100 MILLIGRAM, ONCE DAILY (QD)
     Route: 048
     Dates: start: 20241226
  5. ZONISAMIDE [Concomitant]
     Active Substance: ZONISAMIDE
     Route: 048
     Dates: start: 20241227, end: 20250421
  6. ZONISAMIDE [Concomitant]
     Active Substance: ZONISAMIDE
     Route: 048
     Dates: start: 20250422
  7. MYSTAN [Concomitant]
     Active Substance: CLOBAZAM
     Indication: Lennox-Gastaut syndrome
     Dosage: 13 MILLIGRAM, ONCE DAILY (QD)
     Route: 048
     Dates: end: 20250324
  8. MYSTAN [Concomitant]
     Active Substance: CLOBAZAM
     Dosage: 15 MILLIGRAM, ONCE DAILY (QD)
     Route: 048
     Dates: start: 20250325, end: 20250421
  9. MYSTAN [Concomitant]
     Active Substance: CLOBAZAM
     Dosage: 17 MILLIGRAM, ONCE DAILY (QD)
     Route: 048
     Dates: start: 20250422
  10. LAMICTAL [Concomitant]
     Active Substance: LAMOTRIGINE
     Indication: Lennox-Gastaut syndrome
     Dosage: 50 MILLIGRAM, ONCE DAILY (QD)
     Route: 048
     Dates: end: 20240520
  11. LAMICTAL [Concomitant]
     Active Substance: LAMOTRIGINE
     Dosage: 40 MILLIGRAM, ONCE DAILY (QD)
     Route: 048
     Dates: start: 20240521, end: 20240722
  12. LAMICTAL [Concomitant]
     Active Substance: LAMOTRIGINE
     Dosage: 30 MILLIGRAM, ONCE DAILY (QD)
     Route: 048
     Dates: start: 20240723
  13. VALPROATE SODIUM [Concomitant]
     Active Substance: VALPROATE SODIUM
     Indication: Lennox-Gastaut syndrome
     Dosage: 800 MILLIGRAM, ONCE DAILY (QD)
     Route: 048
     Dates: end: 20250324
  14. INOVELON [Concomitant]
     Active Substance: RUFINAMIDE
     Indication: Lennox-Gastaut syndrome
     Dosage: 200 MILLIGRAM, ONCE DAILY (QD)
     Route: 048
     Dates: end: 20240520
  15. INOVELON [Concomitant]
     Active Substance: RUFINAMIDE
     Dosage: 400 MILLIGRAM, ONCE DAILY (QD)
     Route: 048
     Dates: start: 20240521

REACTIONS (4)
  - Epilepsy [Recovering/Resolving]
  - Somnolence [Recovered/Resolved]
  - Off label use [Unknown]
  - Prescribed underdose [Unknown]

NARRATIVE: CASE EVENT DATE: 20240612
